FAERS Safety Report 23354749 (Version 1)
Quarter: 2024Q1

REPORT INFORMATION
  Report Type: Spontaneous
  Country: US (occurrence: US)
  Receive Date: 20240101
  Receipt Date: 20240101
  Transmission Date: 20240410
  Serious: Yes (Hospitalization)
  Sender: FDA-Public Use
  Company Number: US-FreseniusKabi-FK202321089

PATIENT
  Age: 50 Year
  Sex: Male
  Weight: 61.9 kg

DRUGS (21)
  1. HEPARIN SODIUM [Suspect]
     Active Substance: HEPARIN SODIUM
     Indication: Thrombosis prophylaxis
     Dosage: CONFIRMED TO HAVE BEEN GIVEN FOR LAST DOSE ON 11-DEC-2023?SUBCUTANEOUS
     Route: 058
     Dates: start: 20231207, end: 20231211
  2. HEPARIN SODIUM [Suspect]
     Active Substance: HEPARIN SODIUM
     Dosage: SUBCUTANEOUS
     Route: 058
     Dates: start: 20231207, end: 20231211
  3. TYLENOL [Concomitant]
     Active Substance: ACETAMINOPHEN
     Indication: Product used for unknown indication
     Dates: start: 20231206, end: 20231211
  4. UNASYN [Concomitant]
     Active Substance: AMPICILLIN SODIUM\SULBACTAM SODIUM
     Indication: Product used for unknown indication
     Dates: start: 20231206, end: 20231211
  5. CABERGOLINE [Concomitant]
     Active Substance: CABERGOLINE
     Indication: Product used for unknown indication
     Dates: start: 20231206, end: 20231211
  6. CEFAZOLIN [Concomitant]
     Active Substance: CEFAZOLIN
     Indication: Product used for unknown indication
     Dates: start: 20231206, end: 20231211
  7. DESMOPRESSIN [Concomitant]
     Active Substance: DESMOPRESSIN
     Indication: Product used for unknown indication
     Dates: start: 20231206, end: 20231211
  8. HYDROCORTISONE [Concomitant]
     Active Substance: HYDROCORTISONE
     Indication: Product used for unknown indication
     Dates: start: 20231206, end: 20231211
  9. PANTOPRAZOLE [Concomitant]
     Active Substance: PANTOPRAZOLE
     Indication: Product used for unknown indication
     Dates: start: 20231206, end: 20231211
  10. CALCIUM CARBONATE [Concomitant]
     Active Substance: CALCIUM CARBONATE
     Indication: Product used for unknown indication
     Dates: start: 20231206, end: 20231211
  11. FENTANYL [Concomitant]
     Active Substance: FENTANYL\FENTANYL CITRATE
     Indication: Product used for unknown indication
     Dates: start: 20231206, end: 20231211
  12. LIDOCAINE [Concomitant]
     Active Substance: LIDOCAINE
     Indication: Product used for unknown indication
     Dates: start: 20231206, end: 20231211
  13. MAGNESIUM SULFATE [Concomitant]
     Active Substance: MAGNESIUM SULFATE\MAGNESIUM SULFATE HEPTAHYDRATE
     Indication: Product used for unknown indication
     Dates: start: 20231206, end: 20231211
  14. ONDANSETRON [Concomitant]
     Active Substance: ONDANSETRON
     Indication: Product used for unknown indication
     Dates: start: 20231206, end: 20231211
  15. PHENYLEPHRINE [Concomitant]
     Active Substance: PHENYLEPHRINE HYDROCHLORIDE
     Indication: Product used for unknown indication
     Dates: start: 20231206, end: 20231211
  16. POTASSIUM CHLORIDE [Concomitant]
     Active Substance: POTASSIUM CHLORIDE
     Indication: Product used for unknown indication
     Dates: start: 20231206, end: 20231211
  17. PROPOFOL [Concomitant]
     Active Substance: PROPOFOL
     Indication: Product used for unknown indication
     Dates: start: 20231206, end: 20231211
  18. REMIFENTANIL [Concomitant]
     Active Substance: REMIFENTANIL
     Indication: Product used for unknown indication
     Dates: start: 20231206, end: 20231211
  19. ROCURONIUM [Concomitant]
     Active Substance: ROCURONIUM BROMIDE
     Indication: Product used for unknown indication
     Dates: start: 20231206, end: 20231211
  20. SUGAMMADEX [Concomitant]
     Active Substance: SUGAMMADEX
     Indication: Product used for unknown indication
     Dates: start: 20231206, end: 20231211
  21. VASOPRESSIN [Concomitant]
     Active Substance: VASOPRESSIN
     Indication: Product used for unknown indication
     Dates: start: 20231206, end: 20231211

REACTIONS (2)
  - Intraventricular haemorrhage [Recovering/Resolving]
  - Therapeutic product effect increased [Recovering/Resolving]

NARRATIVE: CASE EVENT DATE: 20231211
